FAERS Safety Report 8816207 (Version 3)
Quarter: 2012Q4

REPORT INFORMATION
  Report Type: 
  Country: US (occurrence: US)
  Receive Date: 20120929
  Receipt Date: 20121203
  Transmission Date: 20130627
  Serious: No
  Sender: FDA-Public Use
  Company Number: US-ASTRAZENECA-2012SE72081

PATIENT
  Age: 81 Year
  Sex: Female

DRUGS (2)
  1. NEXIUM [Suspect]
     Route: 048
  2. PRILOSEC [Suspect]
     Route: 048

REACTIONS (6)
  - Disease recurrence [Unknown]
  - Oesophageal food impaction [Unknown]
  - Throat irritation [Unknown]
  - Hiatus hernia [Unknown]
  - Pain [Unknown]
  - Drug dose omission [Unknown]
